FAERS Safety Report 5888313-8 (Version None)
Quarter: 2008Q3

REPORT INFORMATION
  Report Type: 
  Country: None (occurrence: None)
  Receive Date: 20080916
  Receipt Date: 20080916
  Transmission Date: 20090109
  Serious: Yes (Hospitalization)
  Sender: FDA-Public Use
  Company Number: None

PATIENT
  Age: 68 Year
  Sex: Female
  Weight: 99.27 kg

DRUGS (2)
  1. DORIBAX [Suspect]
     Indication: PANCREATIC PSEUDOCYST
     Dosage: 250MG EVERY 8 HOURS IV
     Route: 042
     Dates: start: 20080828, end: 20080831
  2. DORIBAX [Suspect]
     Indication: PANCREATITIS ACUTE
     Dosage: 250MG EVERY 8 HOURS IV
     Route: 042
     Dates: start: 20080828, end: 20080831

REACTIONS (3)
  - CHILLS [None]
  - DYSPNOEA [None]
  - TACHYPNOEA [None]
